FAERS Safety Report 9254732 (Version 1)
Quarter: 2013Q2

REPORT INFORMATION
  Report Type: Not Available
  Country: FR (occurrence: FR)
  Receive Date: 20130424
  Receipt Date: 20130424
  Transmission Date: 20140414
  Serious: Yes (Hospitalization)
  Sender: FDA-Public Use
  Company Number: FR-RB-052543-13

PATIENT
  Age: 46 Year
  Sex: Female

DRUGS (2)
  1. SUBUTEX [Suspect]
     Indication: PRODUCT USED FOR UNKNOWN INDICATION
     Dosage: 2 BLISTER-PACK ON ONE INTAKE
     Route: 048
     Dates: start: 201211, end: 201211
  2. LEXOMIL ROCHE NOS [Concomitant]
     Indication: PRODUCT USED FOR UNKNOWN INDICATION
     Dosage: DOSAGE DETAILS UNKNOWN
     Route: 048

REACTIONS (4)
  - Poisoning deliberate [Recovered/Resolved]
  - Coma scale abnormal [Recovered/Resolved]
  - Somnolence [Recovered/Resolved]
  - Lung disorder [Recovered/Resolved]
